FAERS Safety Report 18326205 (Version 1)
Quarter: 2020Q3

REPORT INFORMATION
  Report Type: Spontaneous
  Country: DK (occurrence: DK)
  Receive Date: 20200929
  Receipt Date: 20200929
  Transmission Date: 20201103
  Serious: Yes (Hospitalization)
  Sender: FDA-Public Use
  Company Number: DK-JNJFOC-20200929275

PATIENT
  Age: 68 Year
  Sex: Male
  Weight: 79 kg

DRUGS (5)
  1. ZALASTA [Concomitant]
     Active Substance: OLANZAPINE
     Indication: DISTURBANCE IN ATTENTION
     Dosage: STRENGTH: 2.5 MG
     Route: 048
     Dates: start: 20200701
  2. ORAMORPH [Concomitant]
     Active Substance: MORPHINE SULFATE
     Indication: DYSPNOEA
     Dosage: STRENGTH: 20 MG/ML. DOSAGE: 6 DROPS AS NEEDED, MAX 8 TIMES A DAY; AS REQUIRED
     Route: 048
     Dates: start: 20200609
  3. SERENASE (HALOPERIDOL) [Suspect]
     Active Substance: HALOPERIDOL
     Indication: TACHYPHRENIA
     Dosage: STRENGTH: 5 MG. DOSAGE: 1.25 MG AS NEEDED, MAX 4 TIMES A DAY; AS REQUIRED
     Route: 048
     Dates: start: 20200824, end: 20200831
  4. METADON ^DAK^ [Concomitant]
     Active Substance: METHADONE HYDROCHLORIDE
     Indication: PAIN
     Dosage: STRENGTH: 5 MG. DOSAGE: AS PRESCRIBED
     Route: 048
     Dates: start: 20200804
  5. MORFIN ^DAK^ [Concomitant]
     Indication: PAIN
     Dosage: STRENGTH: 10 MG. DOSAGE 15 MG AS NEEDED, MAX 6 TIMES A DAY; AS REQUIRED
     Route: 048
     Dates: start: 20200528

REACTIONS (1)
  - Fall [Unknown]

NARRATIVE: CASE EVENT DATE: 20200827
